FAERS Safety Report 24149875 (Version 1)
Quarter: 2024Q3

REPORT INFORMATION
  Report Type: Report from Study
  Country: US (occurrence: US)
  Receive Date: 20240730
  Receipt Date: 20240730
  Transmission Date: 20241017
  Serious: Yes (Other)
  Sender: ROCHE
  Company Number: US-ROCHE-10000040886

PATIENT
  Age: 74 Year
  Sex: Female

DRUGS (3)
  1. ESBRIET [Suspect]
     Active Substance: PIRFENIDONE
     Indication: Interstitial lung disease
     Dosage: TAKE 1 TABLET BY MOUTH TWICE A DAY WITH FOOD
     Route: 048
  2. ESBRIET [Suspect]
     Active Substance: PIRFENIDONE
     Indication: Hypoxia
  3. ESBRIET [Suspect]
     Active Substance: PIRFENIDONE
     Indication: Hypersensitivity pneumonitis

REACTIONS (2)
  - Skin cancer [Unknown]
  - Off label use [Unknown]
